FAERS Safety Report 6654749-0 (Version None)
Quarter: 2010Q1

REPORT INFORMATION
  Report Type: 
  Country: None (occurrence: None)
  Receive Date: 20100327
  Receipt Date: 20100116
  Transmission Date: 20100710
  Serious: Yes (Other)
  Sender: FDA-Public Use
  Company Number: US-JNJFOC-20100112022

PATIENT
  Age: 79 Year
  Sex: Male
  Weight: 69.85 kg

DRUGS (4)
  1. TYLENOL [Suspect]
     Indication: ARTHRALGIA
     Route: 048
  2. TYLENOL [Suspect]
     Indication: PAIN
     Route: 048
  3. NIACIN [Concomitant]
  4. HYDROCHLOROTHIAZIDE [Concomitant]

REACTIONS (3)
  - BLOOD PRESSURE DECREASED [None]
  - DIZZINESS [None]
  - PRODUCT QUALITY ISSUE [None]
